FAERS Safety Report 5417568-9 (Version None)
Quarter: 2007Q3

REPORT INFORMATION
  Report Type: 
  Country: None (occurrence: None)
  Receive Date: 20070718
  Receipt Date: 20070507
  Transmission Date: 20080115
  Serious: Yes (Hospitalization, Other)
  Sender: FDA-Public Use
  Company Number: 2007037122

PATIENT
  Age: 48 Year
  Sex: Male
  Weight: 70.3 kg

DRUGS (2)
  1. CELEBREX [Suspect]
     Indication: INFLAMMATION
     Dosage: 75 MG (25 MG, 3 IN 1 D)
     Dates: start: 19990901
  2. CELEBREX [Suspect]
     Indication: JOINT INJURY
     Dosage: 75 MG (25 MG, 3 IN 1 D)
     Dates: start: 19990901

REACTIONS (2)
  - DEPRESSION [None]
  - MYOCARDIAL INFARCTION [None]
